FAERS Safety Report 5708125-5 (Version None)
Quarter: 2008Q2

REPORT INFORMATION
  Report Type: 
  Country: None (occurrence: None)
  Receive Date: 20080417
  Receipt Date: 20080409
  Transmission Date: 20081010
  Serious: Yes (Hospitalization)
  Sender: FDA-Public Use
  Company Number: A0706914A

PATIENT
  Sex: Male

DRUGS (2)
  1. ADVAIR HFA [Suspect]
     Indication: IDIOPATHIC PULMONARY FIBROSIS
     Route: 055
  2. UNKNOWN [Concomitant]

REACTIONS (2)
  - PNEUMONIA [None]
  - PULMONARY THROMBOSIS [None]
